FAERS Safety Report 8370396-7 (Version None)
Quarter: 2012Q2

REPORT INFORMATION
  Report Type: 
  Country: None (occurrence: None)
  Receive Date: 20120518
  Receipt Date: 20120515
  Transmission Date: 20120825
  Serious: Yes (Death, Hospitalization)
  Sender: FDA-Public Use
  Company Number: US-B.I. PHARMACEUTICALS,INC./RIDGEFIELD-2012-BP-06416BP

PATIENT
  Age: 75 Year
  Sex: Male

DRUGS (7)
  1. PRADAXA [Suspect]
     Indication: ATRIAL FIBRILLATION
     Dosage: 150 MG
     Route: 048
     Dates: start: 20111201, end: 20120301
  2. MULTI-VITAMIN [Concomitant]
  3. LORTAB [Concomitant]
  4. DOCUSATE [Concomitant]
  5. ASPIRIN [Suspect]
     Dosage: 81 MG
  6. CARVEDILOL [Concomitant]
  7. PRAVASTATIN [Concomitant]

REACTIONS (1)
  - GASTROINTESTINAL HAEMORRHAGE [None]
